FAERS Safety Report 5832502-5 (Version None)
Quarter: 2008Q3

REPORT INFORMATION
  Report Type: 
  Country: None (occurrence: None)
  Receive Date: 20080731
  Receipt Date: 20080717
  Transmission Date: 20090109
  Serious: Yes (Hospitalization, Other)
  Sender: FDA-Public Use
  Company Number: DSA_31836_2008

PATIENT
  Sex: Female

DRUGS (9)
  1. LORAZEPAM [Suspect]
     Indication: ANXIETY
     Dosage: (DRUG TAKEN UP TO 3 MG ORAL), (2.5 MG 3 TO 4 TIMES A DAY ORAL)
     Route: 048
     Dates: start: 20050101, end: 20080101
  2. LORAZEPAM [Suspect]
     Indication: RESTLESSNESS
     Dosage: (DRUG TAKEN UP TO 3 MG ORAL), (2.5 MG 3 TO 4 TIMES A DAY ORAL)
     Route: 048
     Dates: start: 20050101, end: 20080101
  3. LORAZEPAM [Suspect]
     Indication: SLEEP DISORDER
     Dosage: (DRUG TAKEN UP TO 3 MG ORAL), (2.5 MG 3 TO 4 TIMES A DAY ORAL)
     Route: 048
     Dates: start: 20050101, end: 20080101
  4. LORAZEPAM [Suspect]
     Indication: ANXIETY
     Dosage: (DRUG TAKEN UP TO 3 MG ORAL), (2.5 MG 3 TO 4 TIMES A DAY ORAL)
     Route: 048
     Dates: start: 20080401, end: 20080501
  5. LORAZEPAM [Suspect]
     Indication: RESTLESSNESS
     Dosage: (DRUG TAKEN UP TO 3 MG ORAL), (2.5 MG 3 TO 4 TIMES A DAY ORAL)
     Route: 048
     Dates: start: 20080401, end: 20080501
  6. LORAZEPAM [Suspect]
     Indication: SLEEP DISORDER
     Dosage: (DRUG TAKEN UP TO 3 MG ORAL), (2.5 MG 3 TO 4 TIMES A DAY ORAL)
     Route: 048
     Dates: start: 20080401, end: 20080501
  7. INEXIUM /01479302/ [Concomitant]
  8. ATACAND [Concomitant]
  9. ZOCOR [Concomitant]

REACTIONS (5)
  - DRUG DEPENDENCE [None]
  - HYPERLIPIDAEMIA [None]
  - HYPERTENSION [None]
  - IIIRD NERVE PARESIS [None]
  - PERSONALITY CHANGE [None]
